FAERS Safety Report 16210227 (Version 1)
Quarter: 2019Q2

REPORT INFORMATION
  Report Type: Spontaneous
  Country: NL (occurrence: NL)
  Receive Date: 20190418
  Receipt Date: 20190418
  Transmission Date: 20190711
  Serious: Yes (Other)
  Sender: FDA-Public Use
  Company Number: NL-AUROBINDO-AUR-APL-2019-020177

PATIENT

DRUGS (8)
  1. MONTELUKAST [Concomitant]
     Active Substance: MONTELUKAST SODIUM
     Indication: PRODUCT USED FOR UNKNOWN INDICATION
     Dosage: 10 MILLIGRAM, ONCE A DAY, 1DD1
     Route: 065
     Dates: start: 20181129
  2. CLONIDINE. [Suspect]
     Active Substance: CLONIDINE
     Indication: NIGHTMARE
     Dosage: 2 DOSAGE FORM, ONCE A DAY, 1DD2
     Route: 065
     Dates: start: 20190218, end: 20190313
  3. LEVOCETIRIZINE DIHCL PCH [Concomitant]
     Indication: PRODUCT USED FOR UNKNOWN INDICATION
     Dosage: 5 MILLIGRAM, ONCE A DAY, 1DD1
     Route: 065
     Dates: start: 20181130
  4. VICTOZA [Concomitant]
     Active Substance: LIRAGLUTIDE
     Indication: PRODUCT USED FOR UNKNOWN INDICATION
     Dosage: 1 DOSAGE FORM, ONCE A DAY, 1DD1,8MG
     Route: 065
     Dates: start: 20181114
  5. RITALIN [Concomitant]
     Active Substance: METHYLPHENIDATE HYDROCHLORIDE
     Indication: PRODUCT USED FOR UNKNOWN INDICATION
     Dosage: UNK
     Route: 065
     Dates: start: 20181012
  6. TRESIBA [Concomitant]
     Active Substance: INSULIN DEGLUDEC
     Indication: PRODUCT USED FOR UNKNOWN INDICATION
     Dosage: 8 INTERNATIONAL UNIT, ONCE A DAY, 1D8EH
     Route: 065
     Dates: start: 20180903
  7. FOSTER NEXTHALER [Concomitant]
     Indication: PRODUCT USED FOR UNKNOWN INDICATION
     Dosage: 2 DOSAGE FORM,2 DOSIS
     Route: 065
     Dates: start: 20180928
  8. SALBUTAMOL PCH [Concomitant]
     Indication: PRODUCT USED FOR UNKNOWN INDICATION
     Dosage: 400 MICROGRAM, 4D1-4PF
     Route: 065
     Dates: start: 20131212

REACTIONS (3)
  - Malaise [Recovering/Resolving]
  - Blood pressure increased [Recovering/Resolving]
  - Headache [Recovering/Resolving]

NARRATIVE: CASE EVENT DATE: 20190220
